FAERS Safety Report 15600549 (Version 2)
Quarter: 2019Q1

REPORT INFORMATION
  Report Type: Report from Study
  Country: JP (occurrence: JP)
  Receive Date: 20181109
  Receipt Date: 20190213
  Transmission Date: 20190417
  Serious: Yes (Death)
  Sender: FDA-Public Use
  Company Number: JP-BEH-2018096683

PATIENT
  Age: 81 Year
  Sex: Male
  Weight: 60 kg

DRUGS (20)
  1. ADONA                              /00056903/ [Concomitant]
     Active Substance: CARBAZOCHROME SODIUM SULFONATE
     Indication: SURGERY
     Dosage: UNK
     Route: 065
     Dates: start: 20180512, end: 20180512
  2. XARELTO [Concomitant]
     Active Substance: RIVAROXABAN
     Route: 048
  3. FENTANYL. [Concomitant]
     Active Substance: FENTANYL
     Indication: SURGERY
     Dosage: UNK
     Route: 065
     Dates: start: 20180512, end: 20180512
  4. HUMULIN R [Concomitant]
     Active Substance: INSULIN HUMAN
     Indication: SURGERY
     Dosage: UNK
     Route: 065
     Dates: start: 20180512, end: 20180512
  5. SOLYUGEN [Concomitant]
     Indication: SURGERY
     Dosage: UNK
     Route: 065
     Dates: start: 20180512, end: 20180512
  6. REMIFENTANIL [Concomitant]
     Active Substance: REMIFENTANIL
     Indication: SURGERY
     Dosage: UNK
     Route: 065
     Dates: start: 20180512, end: 20180512
  7. PERDIPINE [Concomitant]
     Active Substance: NICARDIPINE HYDROCHLORIDE
     Indication: SURGERY
     Dosage: UNK
     Route: 065
     Dates: start: 20180512, end: 20180512
  8. PROPOFOL. [Concomitant]
     Active Substance: PROPOFOL
     Indication: SURGERY
     Dosage: UNK
     Route: 065
     Dates: start: 20180512, end: 20180512
  9. TRANSAMIN [Concomitant]
     Active Substance: TRANEXAMIC ACID
     Indication: SURGERY
     Dosage: UNK
     Route: 065
     Dates: start: 20180512, end: 20180512
  10. FOSTOIN [Concomitant]
     Active Substance: FOSPHENYTOIN SODIUM
     Indication: SURGERY
     Dosage: UNK
     Route: 065
     Dates: start: 20180512, end: 20180512
  11. EPHEDRIN [Concomitant]
     Active Substance: EPHEDRINE HYDROCHLORIDE
     Indication: SURGERY
     Dosage: UNK
     Route: 065
     Dates: start: 20180512, end: 20180512
  12. PHYSIO 70 [Concomitant]
     Indication: SURGERY
     Dosage: UNK
     Route: 065
     Dates: start: 20180512, end: 20180512
  13. BERIPLEX P/N [Suspect]
     Active Substance: COAGULATION FACTOR IX HUMAN\COAGULATION FACTOR VII HUMAN\COAGULATION FACTOR X HUMAN\PROTEIN C\PROTEIN S HUMAN\PROTHROMBIN
     Indication: HAEMORRHAGE
     Dosage: 500 IU, UNK
     Route: 042
     Dates: start: 20180512
  14. ESLAX [Concomitant]
     Active Substance: ROCURONIUM BROMIDE
     Indication: SURGERY
     Dosage: UNK
     Route: 065
     Dates: start: 20180512, end: 20180512
  15. BRIDION [Concomitant]
     Active Substance: SUGAMMADEX
     Indication: SURGERY
     Dosage: UNK
     Route: 065
     Dates: start: 20180512, end: 20180512
  16. BERIPLEX P/N [Suspect]
     Active Substance: COAGULATION FACTOR IX HUMAN\COAGULATION FACTOR VII HUMAN\COAGULATION FACTOR X HUMAN\PROTEIN C\PROTEIN S HUMAN\PROTHROMBIN
     Indication: SURGERY
     Dosage: 500 IU, UNK
     Route: 042
     Dates: start: 20180512
  17. KAYTWO N [Concomitant]
     Active Substance: MENATETRENONE
     Indication: PROCOAGULANT THERAPY
     Dosage: 2 ML, UNK
     Route: 065
     Dates: start: 20180512, end: 20180512
  18. NEOSYNESIN                         /00116302/ [Concomitant]
     Indication: SURGERY
     Dosage: UNK
     Route: 065
     Dates: start: 20180512, end: 20180512
  19. CALCICOL [Concomitant]
     Active Substance: CALCIUM GLUCONATE
     Indication: SURGERY
     Dosage: UNK
     Route: 065
     Dates: start: 20180512, end: 20180512
  20. ACETAMINOPHEN. [Concomitant]
     Active Substance: ACETAMINOPHEN
     Indication: SURGERY
     Dosage: UNK
     Route: 065
     Dates: start: 20180512, end: 20180512

REACTIONS (1)
  - Brain oedema [Fatal]
